FAERS Safety Report 10223791 (Version 2)
Quarter: 2014Q2

REPORT INFORMATION
  Report Type: Spontaneous
  Country: US (occurrence: US)
  Receive Date: 20140609
  Receipt Date: 20140609
  Transmission Date: 20141212
  Serious: No
  Sender: FDA-Public Use
  Company Number: US-DRREDDYS-USA/USA/14/0038832

PATIENT
  Age: 29 Year
  Sex: Female

DRUGS (3)
  1. FEXOFENADINE HCL  OTC [Suspect]
     Indication: HYPERSENSITIVITY
     Route: 048
     Dates: start: 20140310
  2. CLARITIN [Suspect]
     Indication: HYPERSENSITIVITY
     Route: 065
     Dates: start: 20140309
  3. BENADRYL [Suspect]
     Indication: HYPERSENSITIVITY
     Route: 065
     Dates: start: 20140310

REACTIONS (2)
  - Medication error [Unknown]
  - No adverse event [Unknown]
